FAERS Safety Report 5875494-5 (Version None)
Quarter: 2008Q3

REPORT INFORMATION
  Report Type: 
  Country: None (occurrence: None)
  Receive Date: 20080905
  Receipt Date: 20080828
  Transmission Date: 20090109
  Serious: Yes (Other)
  Sender: FDA-Public Use
  Company Number: CHPA2008US14497

PATIENT
  Age: 47 Year
  Sex: Female

DRUGS (1)
  1. MAALOX ANTACID/ANTI-GAS A;.OXIDE/MG.HYDROX./SIMETH. (NCH)(MAGNESIUM HY [Suspect]
     Indication: ANTACID THERAPY
     Dosage: ORAL
     Route: 048
     Dates: start: 20080801, end: 20080828

REACTIONS (3)
  - EXPIRED DRUG ADMINISTERED [None]
  - FATIGUE [None]
  - HAEMATEMESIS [None]
